FAERS Safety Report 6372091-2 (Version None)
Quarter: 2009Q3

REPORT INFORMATION
  Report Type: 
  Country: None (occurrence: None)
  Receive Date: 20090917
  Receipt Date: 20090904
  Transmission Date: 20100115
  Serious: Yes (Hospitalization)
  Sender: FDA-Public Use
  Company Number: ADR18682009

PATIENT
  Age: 28 Year
  Sex: Female

DRUGS (1)
  1. SALBUTAMOL     (MFR: UNKNOWN) [Suspect]
     Dosage: 5 MG

REACTIONS (2)
  - ABDOMINAL PAIN LOWER [None]
  - HYPERLACTACIDAEMIA [None]
